FAERS Safety Report 24120072 (Version 1)
Quarter: 2024Q3

REPORT INFORMATION
  Report Type: Spontaneous
  Country: CN (occurrence: CN)
  Receive Date: 20240722
  Receipt Date: 20240722
  Transmission Date: 20241016
  Serious: Yes (Other)
  Sender: PFIZER
  Company Number: CN-PFIZER INC-PV202400093446

PATIENT
  Age: 67 Year
  Sex: Male

DRUGS (1)
  1. CRIZOTINIB [Suspect]
     Active Substance: CRIZOTINIB
     Dosage: UNK
     Route: 048
     Dates: start: 2022

REACTIONS (13)
  - Cerebral atrophy [Not Recovered/Not Resolved]
  - Aortic arteriosclerosis [Not Recovered/Not Resolved]
  - Arteriosclerosis coronary artery [Not Recovered/Not Resolved]
  - Bone density decreased [Not Recovered/Not Resolved]
  - Lung disorder [Not Recovered/Not Resolved]
  - Pulmonary mass [Not Recovered/Not Resolved]
  - Pleural effusion [Not Recovered/Not Resolved]
  - Rib fracture [Not Recovered/Not Resolved]
  - Spinal disorder [Unknown]
  - Hepatic mass [Recovering/Resolving]
  - Hepatic cyst [Not Recovered/Not Resolved]
  - Renal disorder [Recovering/Resolving]
  - Spleen disorder [Unknown]
